FAERS Safety Report 6885777-8 (Version None)
Quarter: 2010Q3

REPORT INFORMATION
  Report Type: 
  Country: None (occurrence: None)
  Receive Date: 20100729
  Receipt Date: 20081216
  Transmission Date: 20110219
  Serious: Yes (Other)
  Sender: FDA-Public Use
  Company Number: US-PFIZER INC-2008155149

PATIENT
  Sex: Male
  Weight: 75.296 kg

DRUGS (2)
  1. CELEBREX [Suspect]
     Indication: TENDON PAIN
     Dosage: 200 MG, 1X/DAY
     Dates: start: 20081101, end: 20081205
  2. DIOVAN HCT [Concomitant]

REACTIONS (2)
  - PRURITUS [None]
  - RASH [None]
